FAERS Safety Report 19669558 (Version 3)
Quarter: 2021Q3

REPORT INFORMATION
  Report Type: Spontaneous
  Country: US (occurrence: US)
  Receive Date: 20210806
  Receipt Date: 20210903
  Transmission Date: 20211014
  Serious: Yes (Other)
  Sender: FDA-Public Use
  Company Number: US-ORGANON-O2108USA000325

PATIENT
  Age: 32 Year
  Sex: Female
  Weight: 81.18 kg

DRUGS (1)
  1. NEXPLANON [Suspect]
     Active Substance: ETONOGESTREL
     Indication: CONTRACEPTION
     Dosage: 1 ROD EVERY 3 YEARS, IN LEFT ARM
     Route: 059
     Dates: start: 20190905

REACTIONS (3)
  - Unintended pregnancy [Recovered/Resolved]
  - Complication associated with device [Not Recovered/Not Resolved]
  - Ectopic pregnancy with contraceptive device [Recovered/Resolved]

NARRATIVE: CASE EVENT DATE: 202107
